FAERS Safety Report 10899171 (Version 1)
Quarter: 2015Q1

REPORT INFORMATION
  Report Type: Spontaneous
  Country: US (occurrence: US)
  Receive Date: 20150309
  Receipt Date: 20150309
  Transmission Date: 20150721
  Serious: No
  Sender: FDA-Public Use
  Company Number: US-TEVA-546514USA

PATIENT
  Age: 26 Year
  Sex: Female
  Weight: 90.8 kg

DRUGS (2)
  1. PLAN B ONE-STEP [Suspect]
     Active Substance: LEVONORGESTREL
     Dosage: 1.5 MILLIGRAM DAILY;
     Route: 048
     Dates: start: 20150224, end: 20150224
  2. PLAN B ONE-STEP [Suspect]
     Active Substance: LEVONORGESTREL
     Dosage: 1.5 MILLIGRAM DAILY;
     Route: 048
     Dates: start: 20150303, end: 20150303

REACTIONS (3)
  - Dysmenorrhoea [Not Recovered/Not Resolved]
  - Fatigue [Not Recovered/Not Resolved]
  - Nausea [Recovered/Resolved]

NARRATIVE: CASE EVENT DATE: 20150303
